FAERS Safety Report 6062328-1 (Version None)
Quarter: 2009Q1

REPORT INFORMATION
  Report Type: 
  Country: None (occurrence: None)
  Receive Date: 20090203
  Receipt Date: 20090128
  Transmission Date: 20090719
  Serious: Yes (Other)
  Sender: FDA-Public Use
  Company Number: PHBS2009FI00653

PATIENT
  Age: 32 Year
  Sex: Female

DRUGS (3)
  1. CYCLOSPORINE [Suspect]
     Indication: LIVER TRANSPLANT
  2. CORTISONE [Suspect]
     Indication: LIVER TRANSPLANT
  3. RAPAMYCIN [Concomitant]
     Indication: LIVER TRANSPLANT

REACTIONS (3)
  - KAPOSI'S SARCOMA [None]
  - PNEUMOCYSTIS JIROVECI PNEUMONIA [None]
  - TYPE 1 DIABETES MELLITUS [None]
